FAERS Safety Report 10047114 (Version 2)
Quarter: 2014Q1

REPORT INFORMATION
  Report Type: Spontaneous
  Country: US (occurrence: US)
  Receive Date: 20140331
  Receipt Date: 20140331
  Transmission Date: 20141002
  Serious: No
  Sender: FDA-Public Use
  Company Number: US-MYLANLABS-2013S1008768

PATIENT
  Age: 44 Year
  Sex: Female
  Weight: 80.74 kg

DRUGS (10)
  1. FENTANYL TRANSDERMAL SYSTEM [Suspect]
     Indication: BACK PAIN
     Dosage: Q72HR
     Route: 062
     Dates: start: 201303
  2. FENTANYL TRANSDERMAL SYSTEM [Suspect]
     Indication: NECK PAIN
     Dosage: Q72HR
     Route: 062
     Dates: start: 201303
  3. LORCET /00607101/ [Concomitant]
     Indication: PAIN
  4. IBUPROFEN [Concomitant]
     Indication: PAIN
  5. GABAPENTIN [Concomitant]
     Indication: PAIN
  6. SIMVASTATIN [Concomitant]
     Indication: BLOOD CHOLESTEROL INCREASED
  7. PIOGLITAZONE [Concomitant]
     Indication: DIABETES MELLITUS
  8. DETROL LA [Concomitant]
     Indication: HYPERTONIC BLADDER
  9. OMEPRAZOLE [Concomitant]
     Indication: GASTRIC DISORDER
  10. DIPYRIDAMOLE [Concomitant]
     Indication: TRANSIENT ISCHAEMIC ATTACK

REACTIONS (2)
  - Drug withdrawal syndrome [Recovered/Resolved]
  - Incorrect drug administration duration [Recovered/Resolved]
